FAERS Safety Report 19459042 (Version 2)
Quarter: 2021Q3

REPORT INFORMATION
  Report Type: Spontaneous
  Country: US (occurrence: US)
  Receive Date: 20210624
  Receipt Date: 20210714
  Transmission Date: 20211014
  Serious: Yes (Other)
  Sender: FDA-Public Use
  Company Number: US-SA-2021SA207525

PATIENT
  Age: 35 Year
  Sex: Female

DRUGS (2)
  1. KEVZARA [Suspect]
     Active Substance: SARILUMAB
     Indication: RHEUMATOID ARTHRITIS
     Dosage: 200 MG, QOW
     Route: 058
     Dates: start: 201904
  2. KEVZARA [Suspect]
     Active Substance: SARILUMAB
     Indication: DERMATITIS ATOPIC

REACTIONS (5)
  - Skin infection [Unknown]
  - Product use in unapproved indication [Unknown]
  - Abdominal infection [Unknown]
  - Arthralgia [Unknown]
  - Swollen joint count increased [Unknown]

NARRATIVE: CASE EVENT DATE: 202105
